FAERS Safety Report 6007938-2 (Version None)
Quarter: 2008Q4

REPORT INFORMATION
  Report Type: 
  Country: None (occurrence: None)
  Receive Date: 20081217
  Receipt Date: 20080616
  Transmission Date: 20090506
  Serious: No
  Sender: FDA-Public Use
  Company Number: US-ASTRAZENECA-2008UW12062

PATIENT
  Age: 69 Year
  Sex: Female
  Weight: 133.8 kg

DRUGS (3)
  1. CRESTOR [Suspect]
     Route: 048
     Dates: start: 20080101
  2. TEKTURNA [Concomitant]
  3. ASPIRIN [Concomitant]

REACTIONS (1)
  - COGNITIVE DISORDER [None]
